FAERS Safety Report 4983086-5 (Version None)
Quarter: 2006Q2

REPORT INFORMATION
  Report Type: 
  Country: None (occurrence: None)
  Receive Date: 20060420
  Receipt Date: 20060411
  Transmission Date: 20061013
  Serious: Yes (Other)
  Sender: FDA-Public Use
  Company Number: 2006036267

PATIENT
  Age: 32 Year
  Sex: Male
  Weight: 90.7194 kg

DRUGS (10)
  1. LYRICA [Suspect]
     Indication: PAIN IN EXTREMITY
     Dosage: ORAL
     Route: 048
     Dates: start: 20060118, end: 20060119
  2. SOMA [Concomitant]
  3. FIORICET [Concomitant]
  4. XANAX [Concomitant]
  5. VALSARTAN [Concomitant]
  6. FLEXERIL [Concomitant]
  7. VICODIN [Concomitant]
  8. ROBAXIN [Concomitant]
  9. NORCO [Concomitant]
  10. IBUPROFEN [Concomitant]

REACTIONS (15)
  - ASTHENIA [None]
  - BACK PAIN [None]
  - DIZZINESS [None]
  - DRUG HYPERSENSITIVITY [None]
  - DRY SKIN [None]
  - DYSPNOEA [None]
  - EMOTIONAL DISTRESS [None]
  - FEELING HOT [None]
  - LOSS OF CONSCIOUSNESS [None]
  - NAUSEA [None]
  - PHOTOPHOBIA [None]
  - RESPIRATORY ARREST [None]
  - SKIN WARM [None]
  - SYNCOPE [None]
  - VOMITING [None]
